FAERS Safety Report 11857581 (Version 1)
Quarter: 2015Q4

REPORT INFORMATION
  Report Type: Spontaneous
  Country: US (occurrence: US)
  Receive Date: 20151221
  Receipt Date: 20151221
  Transmission Date: 20160305
  Serious: Yes (Hospitalization)
  Sender: FDA-Public Use
  Company Number: US-NOVOPROD-474244

PATIENT
  Age: 62 Year
  Sex: Female

DRUGS (1)
  1. VICTOZA [Suspect]
     Active Substance: LIRAGLUTIDE
     Indication: PRODUCT USED FOR UNKNOWN INDICATION
     Route: 058

REACTIONS (6)
  - Knee arthroplasty [Unknown]
  - Blood glucose increased [Unknown]
  - Temporomandibular joint syndrome [Unknown]
  - Hip arthroplasty [Unknown]
  - Pain [Unknown]
  - Glycosylated haemoglobin increased [Unknown]
